FAERS Safety Report 4479912-9 (Version None)
Quarter: 2004Q3

REPORT INFORMATION
  Report Type: 
  Country: None (occurrence: None)
  Receive Date: 20040923
  Receipt Date: 20040810
  Transmission Date: 20050211
  Serious: No
  Sender: FDA-Public Use
  Company Number: USA040568106

PATIENT
  Age: 79 Year
  Sex: Female
  Weight: 51 kg

DRUGS (6)
  1. FORTEO [Suspect]
     Indication: OSTEOPOROSIS
     Dosage: 20 UG DAY
     Dates: start: 20040520
  2. ACIPHEX [Concomitant]
  3. PREDNISONE [Concomitant]
  4. ZOCOR [Concomitant]
  5. SEREVENT [Concomitant]
  6. PULMOCARE [Concomitant]

REACTIONS (7)
  - ARTHRALGIA [None]
  - BACK PAIN [None]
  - DIFFICULTY IN WALKING [None]
  - FALL [None]
  - FEAR [None]
  - PAIN IN EXTREMITY [None]
  - PATELLA FRACTURE [None]
